FAERS Safety Report 6648247-8 (Version None)
Quarter: 2010Q1

REPORT INFORMATION
  Report Type: 
  Country: None (occurrence: None)
  Receive Date: 20100319
  Receipt Date: 20100303
  Transmission Date: 20100710
  Serious: Yes (Hospitalization)
  Sender: FDA-Public Use
  Company Number: 230441J10BRA

PATIENT
  Sex: Male

DRUGS (7)
  1. REBIF [Suspect]
     Indication: RELAPSING-REMITTING MULTIPLE SCLEROSIS
     Dosage: 44 MCG, 3 IN 1 WEEKS ; 44 MCG, 3 IN 1 WEEKS
     Dates: start: 20030102, end: 20100201
  2. REBIF [Suspect]
     Indication: RELAPSING-REMITTING MULTIPLE SCLEROSIS
     Dosage: 44 MCG, 3 IN 1 WEEKS ; 44 MCG, 3 IN 1 WEEKS
     Dates: start: 20100101
  3. ASPIRIN [Concomitant]
  4. LOSARTAN (LOSARTAN) [Concomitant]
  5. AMLODIPINE BESYLATE [Concomitant]
  6. HIDRION (POTASSIUM CHLORIDE + FUROSEMIDE) (LASIX-K) [Concomitant]
  7. POTASSIUM (POTASSIUM) [Concomitant]

REACTIONS (1)
  - CHEST PAIN [None]
